FAERS Safety Report 15978155 (Version 1)
Quarter: 2019Q1

REPORT INFORMATION
  Report Type: Spontaneous
  Country: US (occurrence: US)
  Receive Date: 20190218
  Receipt Date: 20190218
  Transmission Date: 20190418
  Serious: No
  Sender: FDA-Public Use
  Company Number: US-SA-2019SA044278

PATIENT

DRUGS (3)
  1. ARAVA [Suspect]
     Active Substance: LEFLUNOMIDE
  2. ENBREL [Suspect]
     Active Substance: ETANERCEPT
  3. REMICADE [Suspect]
     Active Substance: INFLIXIMAB

REACTIONS (1)
  - Drug ineffective [Unknown]
